FAERS Safety Report 6546021-4 (Version None)
Quarter: 2010Q1

REPORT INFORMATION
  Report Type: 
  Country: None (occurrence: None)
  Receive Date: 20100121
  Receipt Date: 20100121
  Transmission Date: 20100710
  Serious: No
  Sender: FDA-Public Use
  Company Number: None

PATIENT
  Age: 46 Year
  Sex: Male

DRUGS (2)
  1. INDOMETHACIN [Suspect]
     Dosage: 75 TO 150 MG DAILY PO
     Route: 048
  2. IBUPROFEN [Suspect]
     Indication: GOUT

REACTIONS (5)
  - DIZZINESS [None]
  - GASTRIC ULCER [None]
  - HAEMATOCRIT DECREASED [None]
  - MELAENA [None]
  - NAUSEA [None]
